FAERS Safety Report 21666160 (Version 1)
Quarter: 2022Q4

REPORT INFORMATION
  Report Type: Spontaneous
  Country: US (occurrence: US)
  Receive Date: 20221201
  Receipt Date: 20221201
  Transmission Date: 20230113
  Serious: No
  Sender: FDA-Public Use
  Company Number: US-BIOVITRUM-2022US13757

PATIENT
  Age: 1 Year
  Sex: Female
  Weight: 7 kg

DRUGS (6)
  1. SYNAGIS [Suspect]
     Active Substance: PALIVIZUMAB
     Indication: Premature baby
  2. PULMICORT 0.25MG/2ML AMPUL-NEB [Concomitant]
  3. SYNAGIS [Suspect]
     Active Substance: PALIVIZUMAB
     Indication: Low birth weight baby
  4. OXYGEN [Concomitant]
     Active Substance: OXYGEN
  5. SYNAGIS [Suspect]
     Active Substance: PALIVIZUMAB
     Indication: Bronchopulmonary dysplasia
  6. SYNAGIS [Suspect]
     Active Substance: PALIVIZUMAB
     Indication: Illness

REACTIONS (1)
  - Respiratory syncytial virus test positive [Unknown]

NARRATIVE: CASE EVENT DATE: 20221108
